FAERS Safety Report 8216938 (Version 8)
Quarter: 2013Q3

REPORT INFORMATION
  Report Type: Report from Study
  Country: GB (occurrence: GB)
  Receive Date: 20111101
  Receipt Date: 20130712
  Transmission Date: 20140515
  Serious: Yes (Hospitalization)
  Sender: FDA-Public Use
  Company Number: GB-BRISTOL-MYERS SQUIBB COMPANY-16185530

PATIENT
  Age: 67 Year
  Sex: Male

DRUGS (10)
  1. GLICLAZIDE [Suspect]
     Indication: DIABETES MELLITUS
     Dates: start: 20110723
  2. PLACEBO [Suspect]
     Indication: TYPE 2 DIABETES MELLITUS
     Dosage: INTER ON 10FEB11,RESTARTED ON 3MAR11, INTER ON 27SEP11
     Dates: start: 20100805, end: 20110926
  3. ALLOPURINOL [Suspect]
     Dates: start: 20110826, end: 20110919
  4. ASPIRIN [Concomitant]
     Dosage: 1DF:{100MG
  5. NITRATES [Concomitant]
  6. DIGOXIN [Concomitant]
     Dates: start: 20110509
  7. PREDNISOLONE [Concomitant]
     Dates: start: 20110714, end: 20110920
  8. CODEINE PHOSPHATE [Concomitant]
     Dates: start: 20110627
  9. PARACETAMOL [Concomitant]
     Dates: start: 20110627
  10. CHLORPHENAMINE [Concomitant]
     Dates: start: 20110919

REACTIONS (2)
  - Stevens-Johnson syndrome [Recovered/Resolved]
  - Toxic epidermal necrolysis [Recovered/Resolved]
